FAERS Safety Report 15735111 (Version 3)
Quarter: 2019Q1

REPORT INFORMATION
  Report Type: Spontaneous
  Country: SE (occurrence: SE)
  Receive Date: 20181218
  Receipt Date: 20190212
  Transmission Date: 20190417
  Serious: Yes (Disabling, Other)
  Sender: FDA-Public Use
  Company Number: SE-LUNDBECK-DKLU2058255

PATIENT
  Age: 33 Year
  Sex: Male

DRUGS (2)
  1. SABRILEX [Suspect]
     Active Substance: VIGABATRIN
     Route: 048
     Dates: end: 2010
  2. SABRILEX [Suspect]
     Active Substance: VIGABATRIN
     Indication: EPILEPSY
     Route: 048
     Dates: start: 1994, end: 2002

REACTIONS (4)
  - Cerebrovascular accident [Recovered/Resolved with Sequelae]
  - Visual impairment [Not Recovered/Not Resolved]
  - Seizure [Unknown]
  - Drug ineffective [Unknown]

NARRATIVE: CASE EVENT DATE: 1997
